FAERS Safety Report 11834273 (Version 3)
Quarter: 2016Q3

REPORT INFORMATION
  Report Type: Spontaneous
  Country: US (occurrence: US)
  Receive Date: 20151214
  Receipt Date: 20160912
  Transmission Date: 20161109
  Serious: Yes (Hospitalization)
  Sender: FDA-Public Use
  Company Number: US-JNJFOC-20151122670

PATIENT
  Age: 69 Year
  Sex: Male

DRUGS (3)
  1. COUMADIN [Suspect]
     Active Substance: WARFARIN SODIUM
     Indication: BLOOD DISORDER
     Route: 065
     Dates: start: 2013
  2. XARELTO [Suspect]
     Active Substance: RIVAROXABAN
     Indication: ANTICOAGULANT THERAPY
     Route: 048
     Dates: start: 20130806, end: 20130820
  3. XARELTO [Suspect]
     Active Substance: RIVAROXABAN
     Indication: SURGERY
     Route: 048
     Dates: start: 20130806, end: 20130820

REACTIONS (2)
  - Gastrointestinal haemorrhage [Unknown]
  - Urinary bladder haemorrhage [Unknown]

NARRATIVE: CASE EVENT DATE: 20130821
